FAERS Safety Report 9740678 (Version 1)
Quarter: 2013Q4

REPORT INFORMATION
  Report Type: Spontaneous
  Country: US (occurrence: US)
  Receive Date: 20131209
  Receipt Date: 20131209
  Transmission Date: 20140711
  Serious: No
  Sender: FDA-Public Use
  Company Number: US-BIOGENIDEC-2013BI095107

PATIENT
  Age: 56 Year
  Sex: Female

DRUGS (10)
  1. TECFIDERA [Suspect]
     Indication: PRODUCT USED FOR UNKNOWN INDICATION
     Route: 048
  2. IBUPROFEN [Concomitant]
  3. BENADRYL [Concomitant]
  4. IBUPROFEN [Concomitant]
  5. TYLENOL PM [Concomitant]
  6. CRESTOR [Concomitant]
  7. GLUCOPHAGE [Concomitant]
  8. VITAMIN D [Concomitant]
  9. PRILOSEC [Concomitant]
  10. CIPRO [Concomitant]

REACTIONS (2)
  - Nephrolithiasis [Not Recovered/Not Resolved]
  - Crying [Not Recovered/Not Resolved]
